FAERS Safety Report 13390853 (Version 1)
Quarter: 2017Q1

REPORT INFORMATION
  Report Type: Spontaneous
  Country: CA (occurrence: CA)
  Receive Date: 20170331
  Receipt Date: 20170331
  Transmission Date: 20170429
  Serious: Yes (Other)
  Sender: FDA-Public Use
  Company Number: CA-LHC-2017078

PATIENT
  Age: 7 Decade
  Sex: Male

DRUGS (1)
  1. OXYGEN (GENERIC) [Suspect]
     Active Substance: OXYGEN

REACTIONS (2)
  - Atrial fibrillation [Unknown]
  - Ventricular tachycardia [Unknown]
